FAERS Safety Report 9155649 (Version 2)
Quarter: 2013Q2

REPORT INFORMATION
  Report Type: Spontaneous
  Country: AU (occurrence: AU)
  Receive Date: 20130311
  Receipt Date: 20130528
  Transmission Date: 20140414
  Serious: Yes (Death)
  Sender: FDA-Public Use
  Company Number: AU-B.I. PHARMACEUTICALS,INC./RIDGEFIELD-2013-AU-00252AU

PATIENT
  Sex: Male
  Weight: 106 kg

DRUGS (13)
  1. PRADAXA [Suspect]
     Indication: CEREBROVASCULAR ACCIDENT PROPHYLAXIS
     Dosage: 300 MG
     Dates: start: 20111010
  2. PRADAXA [Suspect]
     Indication: ATRIAL FIBRILLATION
  3. ZANIDIP [Concomitant]
  4. ASPIRIN [Concomitant]
  5. CRESTOR [Concomitant]
  6. DIABEX XR [Concomitant]
  7. DIAMICRON [Concomitant]
  8. FRUSEMIDE [Concomitant]
  9. METOPROLOL [Concomitant]
  10. MONOPLUS [Concomitant]
  11. PANADOL OSTEO [Concomitant]
  12. SIGMAXIN [Concomitant]
  13. VENTOLIN [Concomitant]

REACTIONS (1)
  - Death [Fatal]
